FAERS Safety Report 23905843 (Version 3)
Quarter: 2024Q3

REPORT INFORMATION
  Report Type: Spontaneous
  Country: US (occurrence: US)
  Receive Date: 20240527
  Receipt Date: 20240906
  Transmission Date: 20241017
  Serious: No
  Sender: BRISTOL MYERS SQUIBB
  Company Number: US-BRISTOL-MYERS SQUIBB COMPANY-2024-083900

PATIENT
  Age: 71 Year
  Sex: Female

DRUGS (2)
  1. LENALIDOMIDE [Suspect]
     Active Substance: LENALIDOMIDE
     Indication: Plasma cell myeloma
     Route: 048
  2. LENALIDOMIDE [Suspect]
     Active Substance: LENALIDOMIDE
     Indication: Chemotherapy
     Dosage: FREQUENCY: TAKE 1 CAPSULE BY MOUTH EVERY DAY IN THE EVENING FOR 21 DAYS
     Route: 048

REACTIONS (2)
  - Pruritus [Recovering/Resolving]
  - White blood cell count decreased [Recovered/Resolved]
